FAERS Safety Report 4614757-8 (Version None)
Quarter: 2005Q1

REPORT INFORMATION
  Report Type: 
  Country: None (occurrence: None)
  Receive Date: 20050322
  Receipt Date: 20050308
  Transmission Date: 20050727
  Serious: Yes (Other)
  Sender: FDA-Public Use
  Company Number: DE-NOVOPROD-242767

PATIENT
  Age: 51 Year
  Sex: Male

DRUGS (20)
  1. NOVOSEVEN [Suspect]
     Indication: ILL-DEFINED DISORDER
     Dosage: 240 KIU, BID
     Dates: start: 20040424, end: 20040424
  2. NOVOSEVEN [Suspect]
     Dosage: 240 KIU, BID
     Dates: start: 20040424, end: 20040424
  3. NOVOSEVEN [Suspect]
     Dosage: 240 KIU, QD
     Dates: start: 20040424, end: 20040424
  4. NOVOSEVEN [Suspect]
     Dosage: 240 KIU, QD
     Dates: start: 20040424, end: 20040424
  5. NOVOSEVEN [Suspect]
     Dosage: 1440 KIU, QD
     Dates: start: 20040429, end: 20040429
  6. NOVOSEVEN [Suspect]
     Dosage: 240 KIU, BID
     Dates: start: 20040429, end: 20040429
  7. NOVOSEVEN [Suspect]
     Dosage: 240 KIU, BID
     Dates: start: 20040429, end: 20040429
  8. NOVOSEVEN [Suspect]
     Dosage: 1440 KIU, QD
     Dates: start: 20040430, end: 20040430
  9. NOVOSEVEN [Suspect]
     Dosage: 240 KIU, BID
     Dates: start: 20040503, end: 20040503
  10. NOVOSEVEN [Suspect]
     Dosage: 1440 KIU, QD
     Dates: start: 20040504, end: 20040504
  11. NOVOSEVEN [Suspect]
     Dosage: 240 KIU, BID
     Dates: start: 20040505, end: 20040505
  12. NOVOSEVEN [Suspect]
     Dosage: 1920 KIU, QD
     Dates: start: 20040506, end: 20040506
  13. NOVOSEVEN [Suspect]
     Dosage: 1920 KIU, QD
     Dates: start: 20040508, end: 20040508
  14. NOVOSEVEN [Suspect]
     Dosage: 240 KIU, QD
     Dates: start: 20040509, end: 20040509
  15. NOVOSEVEN [Suspect]
     Dosage: 240 KIU, TID
     Dates: start: 20040509, end: 20040509
  16. NOVOSEVEN [Suspect]
     Dosage: 15360 KIU, QD
     Dates: start: 20040511, end: 20040511
  17. NOVOSEVEN [Suspect]
     Dosage: 2400 KIU, QD
     Dates: start: 20040512, end: 20040512
  18. NOVOSEVEN [Suspect]
     Dosage: 14400 KIU, QD
     Dates: start: 20040512, end: 20040512
  19. NOVOSEVEN [Suspect]
     Dosage: 3360 KIU, QD
     Dates: start: 20040513, end: 20040513
  20. NOVOSEVEN [Suspect]
     Dosage: 20160 KIU, QD
     Dates: start: 20040514, end: 20040514

REACTIONS (1)
  - HEPATITIS C VIRUS [None]
